FAERS Safety Report 5829694-0 (Version None)
Quarter: 2008Q3

REPORT INFORMATION
  Report Type: 
  Country: None (occurrence: None)
  Receive Date: 20080731
  Receipt Date: 20080731
  Transmission Date: 20090109
  Serious: Yes (Hospitalization)
  Sender: FDA-Public Use
  Company Number: None

PATIENT
  Age: 38 Year
  Sex: Female
  Weight: 89.35 kg

DRUGS (1)
  1. CEFOTETAN [Suspect]
     Indication: PREOPERATIVE CARE
     Dosage: 2GM 1 DOSE IVPB
     Route: 042
     Dates: start: 20080624

REACTIONS (8)
  - ABDOMINAL ADHESIONS [None]
  - ANAEMIA [None]
  - ANTIBODY TEST POSITIVE [None]
  - CHEST PAIN [None]
  - COLON ADENOMA [None]
  - COOMBS TEST POSITIVE [None]
  - PYREXIA [None]
  - RETICULOCYTE COUNT INCREASED [None]
